FAERS Safety Report 11591660 (Version 1)
Quarter: 2015Q4

REPORT INFORMATION
  Report Type: Spontaneous
  Country: US (occurrence: US)
  Receive Date: 20151005
  Receipt Date: 20151005
  Transmission Date: 20160304
  Serious: No
  Sender: FDA-Public Use
  Company Number: US-NOVEN PHARMACEUTICALS, INC.-US2015000286

PATIENT
  Age: 69 Year
  Sex: Female

DRUGS (13)
  1. IRON [Concomitant]
     Active Substance: IRON
     Indication: ANAEMIA
     Dosage: UNK, BID
  2. KRILL OIL [Concomitant]
     Active Substance: DIETARY SUPPLEMENT
  3. PROZAC [Concomitant]
     Active Substance: FLUOXETINE HYDROCHLORIDE
  4. VITAMIN B12 [Concomitant]
     Active Substance: CYANOCOBALAMIN
  5. ENALAPRIL [Concomitant]
     Active Substance: ENALAPRIL
  6. THYROID [Concomitant]
     Active Substance: LEVOTHYROXINE\LIOTHYRONINE
  7. MAGNESIUM [Concomitant]
     Active Substance: MAGNESIUM
  8. COMBIPATCH [Suspect]
     Active Substance: ESTRADIOL\NORETHINDRONE ACETATE
     Indication: PRODUCT USED FOR UNKNOWN INDICATION
     Dosage: 0.05/0.14MG, 1/WEEK
     Route: 062
     Dates: start: 20140423
  9. TOCOPHEROL [Concomitant]
     Active Substance: TOCOPHEROL
  10. POTASSIUM [Concomitant]
     Active Substance: POTASSIUM
  11. LIPITOR [Concomitant]
     Active Substance: ATORVASTATIN CALCIUM
  12. VITAMIN B6 [Concomitant]
     Active Substance: PYRIDOXINE HYDROCHLORIDE
  13. SINGULAIR [Concomitant]
     Active Substance: MONTELUKAST SODIUM

REACTIONS (2)
  - Inappropriate schedule of drug administration [Unknown]
  - No adverse event [Unknown]
